FAERS Safety Report 6279416-7 (Version None)
Quarter: 2009Q3

REPORT INFORMATION
  Report Type: 
  Country: None (occurrence: None)
  Receive Date: 20090721
  Receipt Date: 20090710
  Transmission Date: 20100115
  Serious: Yes (Hospitalization)
  Sender: FDA-Public Use
  Company Number: 430001M09NZL

PATIENT
  Age: 45 Year
  Sex: Female
  Weight: 63.75 kg

DRUGS (3)
  1. MITOXANTRONE HYDROCHLORIDE [Suspect]
     Indication: ACUTE MYELOID LEUKAEMIA
     Dosage: 12 MG, 1 IN 1 DAYS, INTRAVENOUS
     Route: 042
     Dates: start: 20070709, end: 20070713
  2. ETOPOSIDE [Suspect]
     Indication: ACUTE MYELOID LEUKAEMIA
     Dosage: 170 MG, 1 IN 1 DAYS, INTRAVENOUS
     Route: 042
     Dates: start: 20070709, end: 20070713
  3. CYTARABINE [Suspect]
     Indication: ACUTE MYELOID LEUKAEMIA
     Dosage: 1.7 G, 1 IN 1 DAYS, INTRAVENOUS
     Route: 042
     Dates: start: 20070709, end: 20070713

REACTIONS (3)
  - CELLULITIS [None]
  - SKIN LACERATION [None]
  - SOFT TISSUE NECROSIS [None]
